FAERS Safety Report 9394723 (Version 1)
Quarter: 2013Q3

REPORT INFORMATION
  Report Type: Report from Study
  Country: LB (occurrence: LB)
  Receive Date: 20130711
  Receipt Date: 20130711
  Transmission Date: 20140515
  Serious: Yes (Hospitalization, Disabling)
  Sender: FDA-Public Use
  Company Number: LB-SANOFI-AVENTIS-2013SA068041

PATIENT
  Age: 49 Year
  Sex: Male

DRUGS (9)
  1. LANTUS SOLOSTAR [Suspect]
     Indication: DIABETES MELLITUS
     Dosage: DOSE:10 UNIT(S)
     Route: 058
     Dates: start: 201208
  2. SOLOSTAR [Suspect]
     Indication: DEVICE THERAPY
     Dates: start: 201208
  3. NOVORAPID [Concomitant]
     Indication: DIABETES MELLITUS
     Dosage: 5 TO 6 UNITS
     Route: 058
     Dates: start: 201207
  4. COZAAR [Concomitant]
     Route: 048
  5. CRESTOR [Concomitant]
     Route: 048
  6. CYMBALTA [Concomitant]
     Route: 048
  7. PLAVIX [Concomitant]
     Route: 048
  8. MALTOFER [Concomitant]
     Route: 048
  9. OMEPRAZOLE [Concomitant]
     Route: 048

REACTIONS (5)
  - Vertigo [Recovering/Resolving]
  - Fatigue [Recovering/Resolving]
  - Mobility decreased [Recovering/Resolving]
  - Cerebral artery embolism [Unknown]
  - Blood pressure orthostatic abnormal [Unknown]
